FAERS Safety Report 6559005-7 (Version None)
Quarter: 2010Q1

REPORT INFORMATION
  Report Type: 
  Country: None (occurrence: None)
  Receive Date: 20100129
  Receipt Date: 20100125
  Transmission Date: 20100710
  Serious: Yes (Other)
  Sender: FDA-Public Use
  Company Number: US-ELI_LILLY_AND_COMPANY-US201001005062

PATIENT
  Sex: Female
  Weight: 67.574 kg

DRUGS (12)
  1. BYETTA [Suspect]
     Indication: TYPE 2 DIABETES MELLITUS
     Dosage: 5 UG, 2/D
     Route: 058
     Dates: start: 20060101
  2. BYETTA [Suspect]
     Dosage: 10 UG, 2/D
     Route: 058
     Dates: end: 20100120
  3. METFORMIN [Concomitant]
     Indication: TYPE 2 DIABETES MELLITUS
     Dosage: 1000 MG, 2/D
     Route: 048
     Dates: end: 20100120
  4. GLIPIZIDE [Concomitant]
     Indication: TYPE 2 DIABETES MELLITUS
     Dosage: 10 MG, 2/D
     Route: 048
  5. SYNTHROID [Concomitant]
     Dosage: 75 UG, DAILY (1/D)
     Route: 048
  6. PENICILLIN VK [Concomitant]
     Dosage: 250 MG, EACH EVENING
     Route: 048
  7. VICODIN [Concomitant]
     Indication: PAIN
     Dosage: UNK, AS NEEDED
     Route: 048
  8. ZETIA [Concomitant]
     Dosage: 10 MG, DAILY (1/D)
     Route: 048
  9. CALCIUM WITH VITAMIN D [Concomitant]
     Dosage: UNK, DAILY (1/D)
     Route: 048
  10. CELEXA [Concomitant]
     Dosage: 20 MG, DAILY (1/D)
     Route: 048
  11. FOSAMAX [Concomitant]
     Dosage: 70 MG, WEEKLY (1/W)
     Route: 048
  12. FISH OIL [Concomitant]
     Dosage: UNK MG, DAILY (1/D)
     Route: 048

REACTIONS (4)
  - LIVER FUNCTION TEST ABNORMAL [None]
  - LIVER TENDERNESS [None]
  - PANCREATITIS [None]
  - VOMITING [None]
